FAERS Safety Report 5277575-6 (Version None)
Quarter: 2007Q1

REPORT INFORMATION
  Report Type: 
  Country: None (occurrence: None)
  Receive Date: 20070327
  Receipt Date: 20070312
  Transmission Date: 20070707
  Serious: Yes (Hospitalization)
  Sender: FDA-Public Use
  Company Number: US-SHR-US-2007-003744

PATIENT
  Age: 42 Year
  Sex: Female
  Weight: 47.619 kg

DRUGS (6)
  1. BETASERON [Suspect]
     Indication: RELAPSING-REMITTING MULTIPLE SCLEROSIS
     Dosage: 8 MIU, EVERY 2D
     Route: 058
     Dates: start: 20060409
  2. BETASERON [Suspect]
     Dosage: 8 MIU, EVERY 2D
     Route: 058
     Dates: start: 20070201
  3. PROTONIX [Concomitant]
     Indication: ULCER
     Dosage: 40 MG, 1X/DAY
     Dates: start: 20061109
  4. LORTAB [Concomitant]
     Indication: PAIN
     Dosage: 7.5 MG, AS REQ'D
     Dates: start: 20070110
  5. LYRICA [Concomitant]
     Dosage: UNK, 1X/DAY
  6. ALL OTHER THERAPEUTIC PRODUCTS [Concomitant]

REACTIONS (1)
  - RELAPSING-REMITTING MULTIPLE SCLEROSIS [None]
